FAERS Safety Report 19567944 (Version 1)
Quarter: 2021Q3

REPORT INFORMATION
  Report Type: Report from Study
  Country: ZA (occurrence: ZA)
  Receive Date: 20210715
  Receipt Date: 20210715
  Transmission Date: 20211014
  Serious: Yes (Death)
  Sender: FDA-Public Use
  Company Number: ZA-ASTRAZENECA-2021A620206

PATIENT
  Age: 53 Year
  Sex: Male

DRUGS (8)
  1. BAYER ASPIRIN CARDIO [Concomitant]
     Active Substance: ASPIRIN
     Indication: BLOOD DISORDER
     Route: 048
  2. BUDEFLAM [Concomitant]
     Active Substance: BUDESONIDE
     Indication: ASTHMA
     Dosage: 200UG/INHAL TWO TIMES A DAY
     Route: 055
  3. PANTOCID [Concomitant]
     Indication: ULCER
     Route: 048
  4. CIPLAZAR [Concomitant]
     Active Substance: LOSARTAN POTASSIUM
     Indication: HYPERTENSION
     Route: 048
  5. DIAGLUCIDE MR [Concomitant]
     Active Substance: GLICLAZIDE
     Indication: DIABETES MELLITUS
     Route: 048
  6. GALVUS MET [Concomitant]
     Active Substance: METFORMIN HYDROCHLORIDE\VILDAGLIPTIN
     Indication: DIABETES MELLITUS
     Route: 048
  7. CRESTOR [Suspect]
     Active Substance: ROSUVASTATIN CALCIUM
     Indication: BLOOD CHOLESTEROL
     Route: 048
  8. FORATEC HFA [Concomitant]
     Indication: ASTHMA
     Dosage: 12UG/INHAL TWO TIMES A DAY
     Route: 055

REACTIONS (1)
  - Death [Fatal]
